FAERS Safety Report 6143744-6 (Version None)
Quarter: 2009Q2

REPORT INFORMATION
  Report Type: 
  Country: None (occurrence: None)
  Receive Date: 20090403
  Receipt Date: 20090323
  Transmission Date: 20091009
  Serious: No
  Sender: FDA-Public Use
  Company Number: PHHY2009GB11496

PATIENT
  Sex: Female

DRUGS (2)
  1. NILOTINIB [Suspect]
     Dosage: UNK
  2. DASATINIB [Suspect]

REACTIONS (1)
  - COUGH [None]
